FAERS Safety Report 8272451-9 (Version None)
Quarter: 2012Q2

REPORT INFORMATION
  Report Type: 
  Country: None (occurrence: None)
  Receive Date: 20120410
  Receipt Date: 20120402
  Transmission Date: 20120825
  Serious: Yes (Other)
  Sender: FDA-Public Use
  Company Number: DE-BAYER-2012-034263

PATIENT
  Age: 41 Year
  Sex: Male

DRUGS (5)
  1. BACLOFEN [Concomitant]
  2. CORTICOSTEROIDS [Concomitant]
  3. DIPYRONE TAB [Concomitant]
  4. TAMSULOSIN HCL [Concomitant]
  5. EXTAVIA [Suspect]
     Indication: PROGRESSIVE MULTIPLE SCLEROSIS
     Dosage: 250 ?G, UNK
     Route: 058
     Dates: start: 20100901

REACTIONS (3)
  - INJECTION SITE NECROSIS [None]
  - HEADACHE [None]
  - LIVER FUNCTION TEST ABNORMAL [None]
